FAERS Safety Report 6523700-6 (Version None)
Quarter: 2009Q4

REPORT INFORMATION
  Report Type: 
  Country: None (occurrence: None)
  Receive Date: 20091222
  Receipt Date: 20091202
  Transmission Date: 20100525
  Serious: Yes (Death)
  Sender: FDA-Public Use
  Company Number: 002838

PATIENT
  Age: 68 Year
  Sex: Female

DRUGS (5)
  1. ISONIAZID [Suspect]
     Indication: TUBERCULOSIS
     Dosage: (300 MG)
  2. PREDNISOLONE [Suspect]
     Indication: IMMUNOSUPPRESSION
     Dates: start: 20070626
  3. RIFAMPICIN [Concomitant]
  4. STREPTOMYCIN [Concomitant]
  5. TACROLIMUS [Concomitant]

REACTIONS (22)
  - ACINETOBACTER INFECTION [None]
  - ALANINE AMINOTRANSFERASE INCREASED [None]
  - ASPARTATE AMINOTRANSFERASE INCREASED [None]
  - BACTERIAL INFECTION [None]
  - BILIRUBIN CONJUGATED INCREASED [None]
  - BLOOD BILIRUBIN INCREASED [None]
  - BONE ABSCESS [None]
  - BONE TUBERCULOSIS [None]
  - BURKHOLDERIA CEPACIA COMPLEX INFECTION [None]
  - DRUG INEFFECTIVE [None]
  - INTERVERTEBRAL DISC DEGENERATION [None]
  - INTERVERTEBRAL DISC SPACE NARROWING [None]
  - JAUNDICE [None]
  - KLEBSIELLA INFECTION [None]
  - LIVER INJURY [None]
  - LUNG INFECTION [None]
  - PYREXIA [None]
  - RESPIRATORY FAILURE [None]
  - SPINAL OSTEOARTHRITIS [None]
  - SPUTUM CULTURE POSITIVE [None]
  - STAPHYLOCOCCAL INFECTION [None]
  - TUBERCULOSIS [None]
